FAERS Safety Report 26111317 (Version 1)
Quarter: 2025Q4

REPORT INFORMATION
  Report Type: Spontaneous
  Country: US (occurrence: US)
  Receive Date: 20251202
  Receipt Date: 20251202
  Transmission Date: 20260118
  Serious: Yes (Life-Threatening, Hospitalization, Other)
  Sender: UNICHEM
  Company Number: US-UNICHEM LABORATORIES LIMITED-UNI-2025-US-003966

PATIENT

DRUGS (1)
  1. BACLOFEN [Suspect]
     Active Substance: BACLOFEN
     Indication: Muscle spasticity
     Dosage: UNK
     Route: 037

REACTIONS (7)
  - Cardiac failure [Unknown]
  - Renal failure [Unknown]
  - Respiratory failure [Unknown]
  - Overdose [Unknown]
  - Toxicity to various agents [Unknown]
  - Acute myocardial infarction [Unknown]
  - Bradycardia [Unknown]
